FAERS Safety Report 5390364-7 (Version None)
Quarter: 2007Q3

REPORT INFORMATION
  Report Type: 
  Country: None (occurrence: None)
  Receive Date: 20070718
  Receipt Date: 20070706
  Transmission Date: 20080115
  Serious: Yes (Other)
  Sender: FDA-Public Use
  Company Number: US-PFIZER INC-2007055418

PATIENT
  Sex: Male
  Weight: 240 kg

DRUGS (2)
  1. ZITHROMAX [Suspect]
     Indication: INFECTION PROPHYLAXIS
     Dosage: FREQ:QD EVERYDAY
     Dates: start: 20070611, end: 20070615
  2. ATENOLOL [Concomitant]

REACTIONS (9)
  - ALANINE AMINOTRANSFERASE INCREASED [None]
  - ASPARTATE AMINOTRANSFERASE INCREASED [None]
  - BLOOD ALKALINE PHOSPHATASE INCREASED [None]
  - BLOOD BILIRUBIN INCREASED [None]
  - FATIGUE [None]
  - MALAISE [None]
  - NAUSEA [None]
  - PRURITUS [None]
  - URINE COLOUR ABNORMAL [None]
